APPROVED DRUG PRODUCT: BAQSIMI
Active Ingredient: GLUCAGON
Strength: 3MG
Dosage Form/Route: POWDER;NASAL
Application: N210134 | Product #001
Applicant: AMPHASTAR PHARMACEUTICALS INC
Approved: Jul 24, 2019 | RLD: Yes | RS: Yes | Type: RX

PATENTS:
Patent 10213487 | Expires: Feb 16, 2036
Patent 12370241 | Expires: Feb 16, 2036
Patent 10765602 | Expires: Sep 23, 2039